FAERS Safety Report 9052305 (Version 1)
Quarter: 2013Q1

REPORT INFORMATION
  Report Type: Spontaneous
  Country: ES (occurrence: ES)
  Receive Date: 20130206
  Receipt Date: 20130206
  Transmission Date: 20140127
  Serious: Yes (Other)
  Sender: FDA-Public Use
  Company Number: ES-PFIZER INC-2013049294

PATIENT
  Age: 83 Year
  Sex: Female

DRUGS (4)
  1. SEVREDOL [Suspect]
     Indication: PAIN
     Dosage: 20 MG, 1X/DAY
     Route: 048
     Dates: start: 20121216, end: 20121227
  2. NOLOTIL [Concomitant]
     Indication: PAIN
  3. PARACETAMOL [Concomitant]
     Indication: PAIN
  4. FENTANYL [Concomitant]
     Indication: PAIN
     Dosage: UNK
     Dates: end: 20121227

REACTIONS (1)
  - Disorientation [Recovered/Resolved]
